FAERS Safety Report 10480743 (Version 1)
Quarter: 2014Q3

REPORT INFORMATION
  Report Type: Spontaneous
  Country: US (occurrence: None)
  Receive Date: 20140908
  Receipt Date: 20140908
  Transmission Date: 20150326
  Serious: Yes (Other)
  Sender: FDA-Public Use
  Company Number: 382347N

PATIENT
  Age: 67 Year
  Sex: Female
  Weight: 90.2 kg

DRUGS (7)
  1. STATIN /00834701/ (ULINASTATIN) [Concomitant]
  2. NOVOLOG [Concomitant]
     Active Substance: INSULIN ASPART
  3. METFORMIN [Concomitant]
     Active Substance: METFORMIN HYDROCHLORIDE
  4. PANTOPRAZOLE [Concomitant]
     Active Substance: PANTOPRAZOLE SODIUM
  5. ULTRAM /00599202/ (TRAMADOL HYDROCHLORIDE) [Concomitant]
  6. VICTOZA [Suspect]
     Active Substance: LIRAGLUTIDE
     Indication: TYPE 2 DIABETES MELLITUS
     Route: 058
     Dates: start: 20130115, end: 20130701
  7. LEVEMIR [Concomitant]
     Active Substance: INSULIN DETEMIR

REACTIONS (3)
  - Weight increased [None]
  - Pancreatitis [None]
  - Impaired gastric emptying [None]

NARRATIVE: CASE EVENT DATE: 201302
